FAERS Safety Report 7621786 (Version 6)
Quarter: 2012Q4

REPORT INFORMATION
  Report Type: Report from Study
  Country: JP (occurrence: JP)
  Receive Date: 20101008
  Receipt Date: 20120907
  Transmission Date: 20130627
  Serious: Yes (Death, Life-Threatening, Other)
  Sender: FDA-Public Use
  Company Number: JP-ROCHE-730467

PATIENT
  Age: 53 Year
  Sex: Female
  Weight: 69.2 kg

DRUGS (22)
  1. RHEUMATREX [Suspect]
     Indication: RHEUMATOID ARTHRITIS
     Dosage: DIVIDED INTO 2 DOSES
     Route: 048
  2. RHEUMATREX [Suspect]
     Route: 048
     Dates: start: 20090114, end: 20090210
  3. RHEUMATREX [Suspect]
     Dosage: DIVIDED INTO 2 DOSES.
     Route: 048
     Dates: start: 20090211, end: 20100901
  4. REMICADE [Suspect]
     Indication: RHEUMATOID ARTHRITIS
     Route: 041
     Dates: start: 20070919, end: 20080731
  5. ROACTEMRA [Suspect]
     Indication: RHEUMATOID ARTHRITIS
     Dosage: DOSAGE IS UNCERTAIN
     Route: 041
     Dates: start: 20080826, end: 20080826
  6. RIMATIL [Concomitant]
     Route: 048
  7. PREDONINE [Concomitant]
     Route: 048
  8. PREDONINE [Concomitant]
     Route: 048
     Dates: start: 20090114, end: 20090210
  9. PREDONINE [Concomitant]
     Route: 048
     Dates: start: 20090211, end: 20090310
  10. PREDONINE [Concomitant]
     Route: 048
     Dates: start: 20090311, end: 20090731
  11. PREDONINE [Concomitant]
     Route: 048
     Dates: start: 20090801, end: 20090901
  12. PREDONINE [Concomitant]
     Route: 048
     Dates: start: 20090902, end: 20101102
  13. PREDONINE [Concomitant]
     Route: 048
     Dates: start: 20101103, end: 20101122
  14. NORVASC [Concomitant]
     Route: 048
  15. NORVASC [Concomitant]
     Route: 048
     Dates: start: 20090801, end: 20090929
  16. PROTECADIN [Concomitant]
     Route: 048
  17. FOLIAMIN [Concomitant]
     Route: 048
  18. FOLIAMIN [Concomitant]
     Route: 048
     Dates: start: 20100731, end: 20100901
  19. BONALON [Concomitant]
     Route: 048
  20. VOLTAREN [Concomitant]
     Route: 061
  21. AMLODIN [Concomitant]
     Route: 048
     Dates: start: 20090930, end: 20100901
  22. DEXAMETHASONE PALMITATE [Concomitant]
     Dosage: DRUG REPORTED: LIMETHASON
     Route: 041
     Dates: start: 20101116, end: 20101116

REACTIONS (5)
  - Renal cell carcinoma [Not Recovered/Not Resolved]
  - Hepatic function abnormal [Recovered/Resolved]
  - Hyperlipidaemia [Not Recovered/Not Resolved]
  - Joint effusion [Unknown]
  - Death [Fatal]
